FAERS Safety Report 14531893 (Version 1)
Quarter: 2018Q1

REPORT INFORMATION
  Report Type: Spontaneous
  Country: US (occurrence: US)
  Receive Date: 20180214
  Receipt Date: 20180214
  Transmission Date: 20180509
  Serious: Yes (Hospitalization, Other)
  Sender: FDA-Public Use
  Company Number: None

PATIENT
  Age: 28 Year
  Sex: Male
  Weight: 86.18 kg

DRUGS (7)
  1. CANNABIS, INDICA [Concomitant]
  2. MILK THISLE [Concomitant]
  3. GINKO BILOBA [Concomitant]
     Active Substance: GINKGO
  4. GEODON [Suspect]
     Active Substance: ZIPRASIDONE HYDROCHLORIDE\ZIPRASIDONE MESYLATE
     Indication: BIPOLAR DISORDER
     Route: 048
     Dates: start: 20170401, end: 20180130
  5. MULTIVITAMIN [Concomitant]
     Active Substance: VITAMINS
  6. CINNAMON W/CHROMIUM [Concomitant]
  7. POTASSIUM GLUCONATE [Concomitant]
     Active Substance: POTASSIUM GLUCONATE

REACTIONS (1)
  - Headache [None]

NARRATIVE: CASE EVENT DATE: 20171011
